FAERS Safety Report 5713247-9 (Version None)
Quarter: 2008Q2

REPORT INFORMATION
  Report Type: 
  Country: None (occurrence: None)
  Receive Date: 20080422
  Receipt Date: 20080410
  Transmission Date: 20081010
  Serious: Yes (Other)
  Sender: FDA-Public Use
  Company Number: US-PFIZER INC-2008031748

PATIENT
  Age: 35 Year
  Sex: Female

DRUGS (1)
  1. GEODON [Suspect]
     Indication: BIPOLAR DISORDER

REACTIONS (4)
  - BRUXISM [None]
  - MUSCLE TIGHTNESS [None]
  - TARDIVE DYSKINESIA [None]
  - TREMOR [None]
